FAERS Safety Report 11738520 (Version 2)
Quarter: 2015Q4

REPORT INFORMATION
  Report Type: Spontaneous
  Country: US (occurrence: US)
  Receive Date: 20151113
  Receipt Date: 20151207
  Transmission Date: 20160304
  Serious: Yes (Other)
  Sender: FDA-Public Use
  Company Number: US-AKORN PHARMACEUTICALS-2015AKN00639

PATIENT
  Age: 17 Year
  Sex: Male
  Weight: 72.11 kg

DRUGS (1)
  1. MYORISAN [Suspect]
     Active Substance: ISOTRETINOIN
     Indication: ACNE CYSTIC
     Dosage: 40 MG, 2X/DAY
     Route: 048
     Dates: start: 20150930, end: 20151029

REACTIONS (3)
  - Attention deficit/hyperactivity disorder [Unknown]
  - Depression [Unknown]
  - Educational problem [Unknown]

NARRATIVE: CASE EVENT DATE: 201510
